FAERS Safety Report 4993828-0 (Version None)
Quarter: 2006Q2

REPORT INFORMATION
  Report Type: 
  Country: None (occurrence: None)
  Receive Date: 20060505
  Receipt Date: 20050824
  Transmission Date: 20061013
  Serious: Yes (Hospitalization, Disabling)
  Sender: FDA-Public Use
  Company Number: US-MERCK-0508USA04061

PATIENT
  Age: 60 Year
  Sex: Male
  Weight: 89 kg

DRUGS (5)
  1. VIOXX [Suspect]
     Indication: ARTHRALGIA
     Route: 048
     Dates: start: 20010701, end: 20030101
  2. VIOXX [Suspect]
     Route: 048
     Dates: start: 20040101
  3. VIOXX [Suspect]
     Indication: ARTHRITIS
     Route: 048
     Dates: start: 20010701, end: 20030101
  4. VIOXX [Suspect]
     Route: 048
     Dates: start: 20040101
  5. ASPIRIN [Concomitant]
     Route: 065

REACTIONS (10)
  - ACUTE MYOCARDIAL INFARCTION [None]
  - CARDIOMEGALY [None]
  - CORONARY ARTERY DISEASE [None]
  - FATIGUE [None]
  - OEDEMA [None]
  - OSTEOPOROSIS [None]
  - PALPITATIONS [None]
  - SCOLIOSIS [None]
  - SUPRAVENTRICULAR EXTRASYSTOLES [None]
  - VASOSPASM [None]
